FAERS Safety Report 15477010 (Version 1)
Quarter: 2018Q4

REPORT INFORMATION
  Report Type: Report from Study
  Country: US (occurrence: US)
  Receive Date: 20181009
  Receipt Date: 20181009
  Transmission Date: 20190205
  Serious: Yes (Other)
  Sender: FDA-Public Use
  Company Number: US-ROCHE-2145676

PATIENT
  Sex: Female

DRUGS (2)
  1. OCREVUS [Suspect]
     Active Substance: OCRELIZUMAB
     Route: 065
     Dates: start: 20180430
  2. OCREVUS [Suspect]
     Active Substance: OCRELIZUMAB
     Indication: PRODUCT USED FOR UNKNOWN INDICATION
     Route: 065
     Dates: start: 20180416

REACTIONS (6)
  - Dysstasia [Not Recovered/Not Resolved]
  - Vision blurred [Not Recovered/Not Resolved]
  - Dysphemia [Not Recovered/Not Resolved]
  - Tachyphrenia [Unknown]
  - Bipolar disorder [Not Recovered/Not Resolved]
  - Gait disturbance [Not Recovered/Not Resolved]
